FAERS Safety Report 8995934 (Version 1)
Quarter: 2013Q1

REPORT INFORMATION
  Report Type: Spontaneous
  Country: US (occurrence: US)
  Receive Date: 20130103
  Receipt Date: 20130103
  Transmission Date: 20140127
  Serious: Yes (Other)
  Sender: FDA-Public Use
  Company Number: CHPA2012US025779

PATIENT
  Age: 73 Year
  Sex: Female

DRUGS (1)
  1. MYOFLEX ANALGESIC CREME [Suspect]
     Indication: ARTHRALGIA
     Dosage: 1 TSP TO 1 TBSP, UNK
     Route: 061
     Dates: start: 2011

REACTIONS (2)
  - Rotator cuff syndrome [Recovered/Resolved]
  - Off label use [Unknown]
